FAERS Safety Report 13375305 (Version 1)
Quarter: 2017Q1

REPORT INFORMATION
  Report Type: Spontaneous
  Country: CA (occurrence: CA)
  Receive Date: 20170327
  Receipt Date: 20170327
  Transmission Date: 20170429
  Serious: Yes (Other)
  Sender: FDA-Public Use
  Company Number: CA-TEVA-752396ACC

PATIENT
  Age: 50 Year
  Sex: Female
  Weight: 99.88 kg

DRUGS (3)
  1. ESCITALOPRAM [Concomitant]
     Active Substance: ESCITALOPRAM OXALATE
  2. SYNTHROID [Concomitant]
     Active Substance: LEVOTHYROXINE SODIUM
  3. BUPROPION. [Suspect]
     Active Substance: BUPROPION
     Indication: DEPRESSION
     Dosage: 300 MILLIGRAM DAILY;
     Route: 048

REACTIONS (4)
  - Nasal congestion [Recovering/Resolving]
  - Respiratory symptom [Recovering/Resolving]
  - Hypersensitivity [Recovering/Resolving]
  - Sneezing [Recovering/Resolving]
